FAERS Safety Report 9894654 (Version 2)
Quarter: 2014Q1

REPORT INFORMATION
  Report Type: Spontaneous
  Country: JP (occurrence: JP)
  Receive Date: 20140213
  Receipt Date: 20140213
  Transmission Date: 20141002
  Serious: Yes (Death)
  Sender: FDA-Public Use
  Company Number: JP-BAYER-2014-014407

PATIENT
  Age: 73 Year
  Sex: Male
  Weight: 63.95 kg

DRUGS (11)
  1. XARELTO [Suspect]
     Indication: ATRIAL FIBRILLATION
     Dosage: UNK
     Route: 048
  2. XARELTO [Interacting]
     Indication: CEREBROVASCULAR ACCIDENT PROPHYLAXIS
  3. BAYASPIRIN [Interacting]
     Dosage: 100 MG, QD
     Route: 048
     Dates: end: 20131004
  4. ENALAPRIL MALEATE [Concomitant]
     Dosage: 5 MG, QD
     Route: 048
     Dates: end: 20131004
  5. ARTIST [Concomitant]
     Dosage: 5 MG, QD
     Route: 048
     Dates: end: 20131004
  6. PIMOBENDAN [Concomitant]
     Dosage: 2.5 MG, QD
     Route: 048
     Dates: end: 20131004
  7. NICORANDIL [Concomitant]
     Dosage: 10 MG, QD
     Route: 048
     Dates: end: 20131004
  8. NEXIUM [Concomitant]
     Dosage: 20 MG, QD
     Route: 048
     Dates: end: 20131004
  9. FEBUXOSTAT [Concomitant]
     Dosage: 20 MG, QD
     Route: 048
     Dates: end: 20131004
  10. FUROSEMIDE [Concomitant]
     Dosage: 60 MG, QD
     Route: 048
     Dates: end: 20131004
  11. SPIRONOLACTONE [Concomitant]
     Dosage: 25 MG, QD
     Route: 048
     Dates: end: 20131004

REACTIONS (3)
  - Subarachnoid haemorrhage [Fatal]
  - Altered state of consciousness [Fatal]
  - Drug interaction [None]
